FAERS Safety Report 20164661 (Version 1)
Quarter: 2021Q4

REPORT INFORMATION
  Report Type: Spontaneous
  Country: US (occurrence: US)
  Receive Date: 20211209
  Receipt Date: 20211209
  Transmission Date: 20220303
  Serious: No
  Sender: FDA-Public Use
  Company Number: US-Axellia-003905

PATIENT
  Sex: Female

DRUGS (2)
  1. DAPTOMYCIN [Suspect]
     Active Substance: DAPTOMYCIN
     Indication: Product used for unknown indication
     Dosage: ONCE A DAY?350 MG IN A COMPOUNDED SYRINGE (DILUENT UNKNOWN)
     Route: 042
     Dates: start: 202109
  2. PIPERACILLIN AND TAZOBACTAM [Suspect]
     Active Substance: PIPERACILLIN SODIUM\TAZOBACTAM SODIUM
     Indication: Product used for unknown indication
     Dosage: 18 GRAMS IN NORMAL SALINE 240 ML IN ECLIPSE ELASTOMERIC PUMP TO RUN OVER 24 HOURS PER DAY
     Route: 042
     Dates: start: 202109

REACTIONS (1)
  - Device occlusion [Unknown]

NARRATIVE: CASE EVENT DATE: 20211001
